FAERS Safety Report 20994809 (Version 1)
Quarter: 2022Q2

REPORT INFORMATION
  Report Type: Spontaneous
  Country: US (occurrence: US)
  Receive Date: 20220622
  Receipt Date: 20220622
  Transmission Date: 20220721
  Serious: No
  Sender: FDA-Public Use
  Company Number: US-BAYER-2022A084976

PATIENT
  Sex: Female

DRUGS (1)
  1. ALEVE-D SINUS AND HEADACHE [Suspect]
     Active Substance: NAPROXEN SODIUM\PSEUDOEPHEDRINE HYDROCHLORIDE
     Indication: COVID-19
     Dosage: UNK
     Route: 048

REACTIONS (1)
  - Drug effective for unapproved indication [Recovered/Resolved]
